FAERS Safety Report 21421168 (Version 1)
Quarter: 2022Q4

REPORT INFORMATION
  Report Type: Report from Study
  Country: US (occurrence: US)
  Receive Date: 20221007
  Receipt Date: 20221007
  Transmission Date: 20230112
  Serious: Yes (Other)
  Sender: FDA-Public Use
  Company Number: US-ABBVIE-4142209

PATIENT
  Sex: Female

DRUGS (1)
  1. IMBRUVICA [Suspect]
     Active Substance: IBRUTINIB
     Indication: Acute lymphocytic leukaemia
     Route: 048
     Dates: start: 20210825

REACTIONS (6)
  - Cerebrovascular accident [Unknown]
  - Nasopharyngitis [Unknown]
  - Pain [Unknown]
  - Gait disturbance [Unknown]
  - Seizure [Unknown]
  - Tremor [Unknown]
